FAERS Safety Report 13416936 (Version 1)
Quarter: 2017Q2

REPORT INFORMATION
  Report Type: Not Available
  Country: None (occurrence: US)
  Receive Date: 20170406
  Receipt Date: 20170406
  Transmission Date: 20170830
  Serious: Yes (Other)
  Sender: FDA-Public Use
  Company Number: US-AKORN-53475

PATIENT
  Sex: Female

DRUGS (1)
  1. THERATEARS LUBRICANT [Suspect]
     Active Substance: CARBOXYMETHYLCELLULOSE SODIUM

REACTIONS (4)
  - Eye injury [Not Recovered/Not Resolved]
  - Eye pain [Recovered/Resolved]
  - Product package associated injury [None]
  - Ocular hyperaemia [Not Recovered/Not Resolved]
